FAERS Safety Report 4676999-5 (Version None)
Quarter: 2005Q2

REPORT INFORMATION
  Report Type: 
  Country: None (occurrence: None)
  Receive Date: 20050526
  Receipt Date: 20050513
  Transmission Date: 20051028
  Serious: Yes (Other)
  Sender: FDA-Public Use
  Company Number: 2005074523

PATIENT
  Age: 17 Year
  Sex: Female

DRUGS (1)
  1. DEPO-PROVERA [Suspect]
     Indication: CONTRACEPTION
     Dosage: 150 MG(150 MG, FIRST INJECTION)
     Dates: start: 20031114, end: 20031114

REACTIONS (4)
  - AMENORRHOEA [None]
  - BREAST ABSCESS [None]
  - MASTITIS [None]
  - PURULENCE [None]
